FAERS Safety Report 8190589 (Version 5)
Quarter: 2014Q1

REPORT INFORMATION
  Report Type: Report from Study
  Country: US (occurrence: US)
  Receive Date: 20111020
  Receipt Date: 20140306
  Transmission Date: 20141002
  Serious: Yes (Hospitalization)
  Sender: FDA-Public Use
  Company Number: US-BRISTOL-MYERS SQUIBB COMPANY-16162794

PATIENT
  Age: 53 Year
  Sex: Female
  Weight: 49.8 kg

DRUGS (10)
  1. IPILIMUMAB [Suspect]
     Indication: MALIGNANT MELANOMA
     Dosage: LAST DOSE ON 06SEP2011 (600 MG)
     Route: 042
     Dates: start: 20110725, end: 20110906
  2. LEUKINE [Suspect]
     Indication: MALIGNANT MELANOMA
     Dosage: LAST DOSE ON 19SEP2011,07SEP2011:500MCG
     Route: 058
     Dates: start: 20110725, end: 20110919
  3. CELEXA [Concomitant]
  4. CEPASTAT [Concomitant]
  5. COLACE [Concomitant]
  6. FLONASE [Concomitant]
  7. NEXIUM [Concomitant]
  8. PHENERGAN [Concomitant]
  9. ZOFRAN [Concomitant]
  10. FOSAMAX [Concomitant]

REACTIONS (12)
  - Colitis [Not Recovered/Not Resolved]
  - Diarrhoea [Not Recovered/Not Resolved]
  - Hypokalaemia [Not Recovered/Not Resolved]
  - Weight decreased [Not Recovered/Not Resolved]
  - Syncope [Not Recovered/Not Resolved]
  - Hyperkalaemia [Not Recovered/Not Resolved]
  - Renal failure [Not Recovered/Not Resolved]
  - Anaemia [Not Recovered/Not Resolved]
  - Pyrexia [Not Recovered/Not Resolved]
  - Ileus [Recovered/Resolved with Sequelae]
  - Constipation [Recovered/Resolved with Sequelae]
  - Small intestinal obstruction [Recovered/Resolved with Sequelae]
